FAERS Safety Report 18500462 (Version 1)
Quarter: 2020Q4

REPORT INFORMATION
  Report Type: Spontaneous
  Country: BR (occurrence: BR)
  Receive Date: 20201113
  Receipt Date: 20201113
  Transmission Date: 20210114
  Serious: Yes (Other)
  Sender: FDA-Public Use
  Company Number: BR-TOPROL-202000077

PATIENT
  Sex: Male

DRUGS (1)
  1. SELOZOK [Suspect]
     Active Substance: METOPROLOL SUCCINATE
     Indication: PRODUCT USED FOR UNKNOWN INDICATION
     Route: 048

REACTIONS (4)
  - Off label use [Not Recovered/Not Resolved]
  - Intentional product misuse [Not Recovered/Not Resolved]
  - Infarction [Unknown]
  - Arrhythmia [Unknown]
